FAERS Safety Report 9705490 (Version 3)
Quarter: 2014Q4

REPORT INFORMATION
  Report Type: Spontaneous
  Country: US (occurrence: US)
  Receive Date: 20131122
  Receipt Date: 20141031
  Transmission Date: 20150529
  Serious: Yes (Other)
  Sender: FDA-Public Use
  Company Number: US-ASTRAZENECA-2013SE56469

PATIENT
  Age: 41 Year
  Sex: Female

DRUGS (2)
  1. CAPRELSA [Suspect]
     Active Substance: VANDETANIB
     Indication: THYROID DISORDER
     Route: 048
     Dates: start: 20130612
  2. CAPRELSA [Suspect]
     Active Substance: VANDETANIB
     Indication: MEDULLARY THYROID CANCER
     Route: 048
     Dates: start: 20130612

REACTIONS (4)
  - Electrocardiogram QT prolonged [Unknown]
  - Nausea [Unknown]
  - Diarrhoea [Unknown]
  - Acute kidney injury [Unknown]
